FAERS Safety Report 9362874 (Version 1)
Quarter: 2013Q2

REPORT INFORMATION
  Report Type: Report from Study
  Country: HU (occurrence: HU)
  Receive Date: 20130624
  Receipt Date: 20130624
  Transmission Date: 20140414
  Serious: Yes (Hospitalization)
  Sender: FDA-Public Use
  Company Number: HU-ROCHE-1239280

PATIENT
  Age: 36 Year
  Sex: Female
  Weight: 56 kg

DRUGS (4)
  1. OMALIZUMAB [Suspect]
     Indication: ASTHMA
     Route: 058
     Dates: start: 20130227
  2. FOSTER [Concomitant]
     Dosage: 10/6 MCG
     Route: 065
     Dates: start: 20090212
  3. MONTELUKAST SODIUM [Concomitant]
     Route: 048
  4. VENTOLIN [Concomitant]
     Indication: ASTHMA
     Route: 065

REACTIONS (2)
  - Malaise [Recovering/Resolving]
  - Dyspnoea [Recovering/Resolving]
